FAERS Safety Report 22124525 (Version 1)
Quarter: 2023Q1

REPORT INFORMATION
  Report Type: Report from Study
  Country: ES (occurrence: ES)
  Receive Date: 20230322
  Receipt Date: 20230322
  Transmission Date: 20230417
  Serious: Yes (Death, Hospitalization, Other)
  Sender: FDA-Public Use
  Company Number: ES-ACTELION-A-CH2018-180583

PATIENT
  Age: 59 Year
  Sex: Female
  Weight: 42 kg

DRUGS (8)
  1. UPTRAVI [Suspect]
     Active Substance: SELEXIPAG
     Indication: Pulmonary arterial hypertension
     Dosage: 800 MCG, QD
     Route: 048
     Dates: start: 20180731, end: 20180925
  2. UPTRAVI [Suspect]
     Active Substance: SELEXIPAG
     Dosage: 400 MCG, QD
     Route: 048
     Dates: start: 20180704, end: 20180730
  3. UPTRAVI [Suspect]
     Active Substance: SELEXIPAG
     Dosage: 400 MCG, QD
     Route: 048
     Dates: start: 20180926, end: 20200128
  4. TRACLEER [Suspect]
     Active Substance: BOSENTAN
     Indication: Pulmonary arterial hypertension
     Dosage: 250 MG, QD
     Route: 048
     Dates: start: 20110101, end: 20200128
  5. REVATIO [Suspect]
     Active Substance: SILDENAFIL CITRATE
     Indication: Pulmonary arterial hypertension
     Dosage: 60 MG, QD
     Route: 048
     Dates: start: 20111108, end: 20200128
  6. POTASSIUM CHLORIDE [Concomitant]
     Active Substance: POTASSIUM CHLORIDE
     Dosage: UNK
     Route: 048
     Dates: start: 20160414, end: 20200128
  7. HYDROCHLOROTHIAZIDE [Concomitant]
     Active Substance: HYDROCHLOROTHIAZIDE
     Indication: Cardiac failure
     Dosage: UNK
     Route: 048
     Dates: start: 20190215, end: 20200128
  8. PANTOPRAZOLE [Concomitant]
     Active Substance: PANTOPRAZOLE
     Indication: Prophylaxis
     Dosage: UNK
     Route: 048
     Dates: start: 20190110, end: 20200128

REACTIONS (16)
  - Right ventricular failure [Fatal]
  - Cardiac arrest [Fatal]
  - Concomitant disease aggravated [Recovered/Resolved with Sequelae]
  - Pulmonary congestion [Fatal]
  - Oedema peripheral [Fatal]
  - Dyspnoea [Fatal]
  - Hypotension [Recovered/Resolved]
  - Dizziness [Recovered/Resolved]
  - Gastrointestinal haemorrhage [Recovered/Resolved]
  - Haemoglobin decreased [Recovered/Resolved]
  - Mediastinal abscess [Recovered/Resolved]
  - Abscess drainage [Recovered/Resolved]
  - Weight decreased [Not Recovered/Not Resolved]
  - Atrial fibrillation [Unknown]
  - Iron deficiency [Recovering/Resolving]
  - Anaemia [Not Recovered/Not Resolved]

NARRATIVE: CASE EVENT DATE: 20180801
